FAERS Safety Report 6434294-8 (Version None)
Quarter: 2009Q4

REPORT INFORMATION
  Report Type: 
  Country: None (occurrence: None)
  Receive Date: 20091110
  Receipt Date: 20091101
  Transmission Date: 20100525
  Serious: Yes (Hospitalization)
  Sender: FDA-Public Use
  Company Number: FR-ABBOTT-09P-056-0606331-00

PATIENT
  Age: 64 Year
  Sex: Male

DRUGS (4)
  1. LIPANTHYL TABLETS [Suspect]
     Indication: DRUG USE FOR UNKNOWN INDICATION
     Route: 048
     Dates: start: 20080601
  2. AUGMENTIN [Suspect]
     Indication: BRONCHITIS
     Dosage: 1 G/125 MG
     Route: 048
     Dates: start: 20090403, end: 20090411
  3. CELESTENE [Suspect]
     Indication: BRONCHITIS
     Route: 048
     Dates: start: 20090403, end: 20090408
  4. LOXEN [Concomitant]
     Indication: DRUG USE FOR UNKNOWN INDICATION
     Route: 048
     Dates: start: 20080201

REACTIONS (1)
  - HEPATITIS [None]
